FAERS Safety Report 10199328 (Version 1)
Quarter: 2014Q2

REPORT INFORMATION
  Report Type: Spontaneous
  Country: US (occurrence: None)
  Receive Date: 20140523
  Receipt Date: 20140523
  Transmission Date: 20141212
  Serious: No
  Sender: FDA-Public Use
  Company Number: None

PATIENT
  Age: 66 Year
  Sex: Female
  Weight: 45.36 kg

DRUGS (1)
  1. MURO 128 [Suspect]
     Indication: CORNEAL DYSTROPHY
     Dosage: 3/8, ONCE DAILY, INTO THE EYE
     Route: 031
     Dates: start: 20140301, end: 20140320

REACTIONS (3)
  - Application site irritation [None]
  - Foreign body sensation in eyes [None]
  - Incorrect product storage [None]
